FAERS Safety Report 8541288-5 (Version None)
Quarter: 2012Q3

REPORT INFORMATION
  Report Type: 
  Country: None (occurrence: None)
  Receive Date: 20120716
  Receipt Date: 20120702
  Transmission Date: 20120928
  Serious: Yes (Hospitalization)
  Sender: FDA-Public Use
  Company Number: UTC-020597

PATIENT
  Age: 78 Year
  Sex: Female
  Weight: 76.8 kg

DRUGS (6)
  1. ACIRCA (TADALAFIL) [Concomitant]
  2. COUMADIN [Concomitant]
  3. LETAIRIS [Concomitant]
  4. ASPIRIN [Concomitant]
  5. TYVASO [Suspect]
     Indication: PULMONARY HYPERTENSION
     Dosage: 216 MCG (54 MVG, 4 IN 1 D), INHALATION
     Route: 055
     Dates: start: 20110808
  6. DIGOXIN [Concomitant]

REACTIONS (7)
  - SYNCOPE [None]
  - NAUSEA [None]
  - HAEMATOCHEZIA [None]
  - DYSPNOEA [None]
  - HYPOTENSION [None]
  - DIZZINESS [None]
  - FATIGUE [None]
